FAERS Safety Report 16148069 (Version 1)
Quarter: 2019Q2

REPORT INFORMATION
  Report Type: Spontaneous
  Country: US (occurrence: US)
  Receive Date: 20190402
  Receipt Date: 20190402
  Transmission Date: 20190711
  Serious: No
  Sender: FDA-Public Use
  Company Number: US-MYLANLABS-2019M1024030

PATIENT
  Age: 92 Year
  Sex: Male
  Weight: 73.92 kg

DRUGS (3)
  1. MUSE [Suspect]
     Active Substance: ALPROSTADIL
     Indication: ERECTILE DYSFUNCTION
     Dosage: 250 MICROGRAM, PRN
     Route: 066
     Dates: start: 201902
  2. MUSE [Suspect]
     Active Substance: ALPROSTADIL
     Dosage: 250 MICROGRAM, PRN
     Route: 066
     Dates: start: 20190306
  3. METOPROLOL. [Concomitant]
     Active Substance: METOPROLOL
     Indication: HYPERTENSION
     Dosage: UNK

REACTIONS (1)
  - Drug ineffective [Unknown]

NARRATIVE: CASE EVENT DATE: 201902
